FAERS Safety Report 4964587-2 (Version None)
Quarter: 2006Q1

REPORT INFORMATION
  Report Type: 
  Country: None (occurrence: None)
  Receive Date: 20060331
  Receipt Date: 20060320
  Transmission Date: 20060701
  Serious: Yes (Other)
  Sender: FDA-Public Use
  Company Number: FR_050305989

PATIENT
  Age: 23 Year
  Sex: Male

DRUGS (3)
  1. ZYPREXA [Suspect]
     Indication: MANIA
     Dosage: 10 MG, DAILY (1/D), ORAL
     Route: 048
     Dates: start: 20050201, end: 20050201
  2. DEPAKOTE [Concomitant]
  3. CLOPIXOL (ZUCLOPENTHIXOL) [Concomitant]

REACTIONS (2)
  - DEPRESSION [None]
  - HYPERTROPHIC CARDIOMYOPATHY [None]
